FAERS Safety Report 20082583 (Version 1)
Quarter: 2021Q4

REPORT INFORMATION
  Report Type: Spontaneous
  Country: DE (occurrence: DE)
  Receive Date: 20211117
  Receipt Date: 20211117
  Transmission Date: 20220303
  Serious: Yes (Hospitalization)
  Sender: FDA-Public Use
  Company Number: DE-ADRED-07048-01

PATIENT
  Age: 66 Year
  Sex: Male
  Weight: 55 kg

DRUGS (16)
  1. IRINOTECAN [Suspect]
     Active Substance: IRINOTECAN
     Indication: Product used for unknown indication
     Dosage: UNK (180 MG, IN1H, INJEKTIONS-/INFUSIONSL?SUNG)
     Route: 042
  2. FLUOROURACIL [Suspect]
     Active Substance: FLUOROURACIL
     Indication: Product used for unknown indication
     Dosage: UNK (2400 MG, IN48H, INJEKTIONS-/INFUSIONSL?SUNG)
     Route: 042
  3. FLUOROURACIL [Suspect]
     Active Substance: FLUOROURACIL
     Dosage: UNK (400 MG, BOLUS, INJEKTIONS-/INFUSIONSL?SUNG  )
     Route: 042
  4. LEUCOVORIN [Concomitant]
     Active Substance: LEUCOVORIN
     Dosage: UNK (200 MG, IN30MIN, INJEKTIONS-/INFUSIONSL?SUNG)
     Route: 042
  5. METOPROLOL [Concomitant]
     Active Substance: METOPROLOL
     Dosage: UNK (47.5 MG, 1-0-1-0, TABLETTEN)
     Route: 048
  6. NUTRIFLEX LIPID PERI [Concomitant]
     Dosage: 1875 ML, ?BER NACHT, INJEKTIONS-/INFUSIONSL?SUNG
     Route: 042
  7. BUPRENORPHIN 1A PHARMA [Concomitant]
     Dosage: 52.5 ?G/H, ALLE 4 TAGE WECHSEL, PFLASTER TRANSDERMAL
     Route: 062
  8. ONDANSETRON [Concomitant]
     Active Substance: ONDANSETRON
     Dosage: UNK (8 MG, EINMALGABE, INJEKTIONS-/INFUSIONSL?SUNG)
     Route: 042
  9. METAMIZOL                          /06276701/ [Concomitant]
     Dosage: UNK (500 MG, 2-2-2-2, TABLETTEN)
     Route: 048
  10. PREDNISOLON                        /00016201/ [Concomitant]
     Dosage: UNK (50 MG, EINMALGABE, INJEKTIONS-/INFUSIONSL?SUNG)
     Route: 042
  11. LEVOTHYROXINE SODIUM [Concomitant]
     Active Substance: LEVOTHYROXINE SODIUM
     Dosage: UNK (25 ?G / WOCHE, NACH SCHEMA, TABLETTEN)
     Route: 048
  12. LEVOTHYROXINE SODIUM [Concomitant]
     Active Substance: LEVOTHYROXINE SODIUM
     Dosage: UNK (50 ?G, NACH SCHEMA, TABLETTEN)
     Route: 048
  13. ASPIRIN [Concomitant]
     Active Substance: ASPIRIN
     Dosage: 100 MG, 0-1-0-0, TABLETTEN
     Route: 048
  14. ATROPIN                            /00002801/ [Concomitant]
     Dosage: UNK (0.5 AMPULLE, EINMALGABE, INJEKTIONS-/INFUSIONSL?SUNG)
     Route: 058
  15. OXYCODONE [Concomitant]
     Active Substance: OXYCODONE
     Dosage: UNK (10 MG, 1-0-1-0, TABLETTEN)
     Route: 048
  16. ATORVASTATIN [Concomitant]
     Active Substance: ATORVASTATIN
     Dosage: UNK (80 MG, 0-0-1-0, TABLETTEN)
     Route: 048

REACTIONS (3)
  - Abdominal pain upper [Unknown]
  - Testicular pain [Unknown]
  - Diarrhoea [Unknown]
